FAERS Safety Report 21887724 (Version 1)
Quarter: 2023Q1

REPORT INFORMATION
  Report Type: Report from Study
  Country: US (occurrence: US)
  Receive Date: 20230120
  Receipt Date: 20230120
  Transmission Date: 20230418
  Serious: No
  Sender: FDA-Public Use
  Company Number: US-ABBVIE-4241914

PATIENT
  Sex: Female

DRUGS (9)
  1. RINVOQ [Suspect]
     Active Substance: UPADACITINIB
     Indication: Rheumatoid arthritis
     Route: 048
  2. TRIAMCINOLON LOT 0.025% [Concomitant]
     Indication: Product used for unknown indication
  3. FOLIC ACID TAB 1MG [Concomitant]
     Indication: Product used for unknown indication
  4. DARVOCET-N TAB 100 [Concomitant]
     Indication: Product used for unknown indication
  5. IBUPROFEN TAB 200MG [Concomitant]
     Indication: Product used for unknown indication
  6. SYNTHROID TAB 150MCG [Concomitant]
     Indication: Product used for unknown indication
  7. PRILOSEC CAP 20MG [Concomitant]
     Indication: Product used for unknown indication
  8. SOMA TAB 350MG [Concomitant]
     Indication: Product used for unknown indication
  9. DEPO-PROVERA INJ 150MG/ML [Concomitant]
     Indication: Product used for unknown indication

REACTIONS (1)
  - Infection [Unknown]
